FAERS Safety Report 22181640 (Version 1)
Quarter: 2023Q2

REPORT INFORMATION
  Report Type: Spontaneous
  Country: CN (occurrence: CN)
  Receive Date: 20230406
  Receipt Date: 20230406
  Transmission Date: 20230722
  Serious: Yes (Death)
  Sender: FDA-Public Use
  Company Number: CN-ELI_LILLY_AND_COMPANY-CN202304001485

PATIENT
  Age: 74 Year
  Sex: Male

DRUGS (1)
  1. PEMETREXED [Suspect]
     Active Substance: PEMETREXED
     Indication: Lung adenocarcinoma
     Dosage: 800 MG
     Route: 042
     Dates: start: 20171219

REACTIONS (8)
  - Myelosuppression [Fatal]
  - Diarrhoea [Fatal]
  - Dermatitis exfoliative [Fatal]
  - Skin disorder [Unknown]
  - Chest discomfort [Unknown]
  - Dyspnoea [Unknown]
  - Mouth ulceration [Unknown]
  - Listless [Unknown]

NARRATIVE: CASE EVENT DATE: 20171222
